FAERS Safety Report 20204886 (Version 1)
Quarter: 2021Q4

REPORT INFORMATION
  Report Type: Spontaneous
  Country: US (occurrence: None)
  Receive Date: 20211220
  Receipt Date: 20211220
  Transmission Date: 20220303
  Serious: Yes (Hospitalization, Other)
  Sender: FDA-Public Use
  Company Number: None

PATIENT
  Age: 57 Year
  Sex: Male

DRUGS (1)
  1. PIPERACILLIN AND TAZOBACTAM [Suspect]
     Active Substance: PIPERACILLIN SODIUM\TAZOBACTAM SODIUM
     Indication: Evidence based treatment
     Dosage: ()

REACTIONS (11)
  - Congestive hepatopathy [Recovering/Resolving]
  - Thrombocytopenia [Recovering/Resolving]
  - Lymphocytic infiltration [Recovering/Resolving]
  - Haemoglobin decreased [Recovering/Resolving]
  - Colitis [Unknown]
  - Enteritis [Unknown]
  - Hypotension [Recovering/Resolving]
  - Rectal haemorrhage [Recovering/Resolving]
  - Transaminases increased [Recovering/Resolving]
  - Drug reaction with eosinophilia and systemic symptoms [Recovering/Resolving]
  - Gallbladder oedema [Recovering/Resolving]
